FAERS Safety Report 6639490-2 (Version None)
Quarter: 2010Q1

REPORT INFORMATION
  Report Type: 
  Country: None (occurrence: None)
  Receive Date: 20100318
  Receipt Date: 20100308
  Transmission Date: 20100710
  Serious: Yes (Hospitalization)
  Sender: FDA-Public Use
  Company Number: US-RB-004737-10

PATIENT
  Age: 24 Month
  Sex: Female
  Weight: 0.9 kg

DRUGS (5)
  1. DELSYM CHILDRENS ORANGE [Suspect]
     Dosage: INGESTED THE ENTIRE BOTTLE.
     Route: 048
     Dates: start: 20100307
  2. RITALIN [Concomitant]
  3. LAMOTRIGINE [Concomitant]
  4. ATENOLOL [Concomitant]
  5. ADDERALL 12.5 [Concomitant]

REACTIONS (4)
  - ACCIDENTAL DRUG INTAKE BY CHILD [None]
  - ACCIDENTAL OVERDOSE [None]
  - CARDIAC DISORDER [None]
  - DYSPNOEA [None]
